FAERS Safety Report 20657296 (Version 1)
Quarter: 2022Q1

REPORT INFORMATION
  Report Type: Spontaneous
  Country: US (occurrence: US)
  Receive Date: 20220331
  Receipt Date: 20220331
  Transmission Date: 20220423
  Serious: No
  Sender: FDA-Public Use
  Company Number: US-ELI_LILLY_AND_COMPANY-US202203013186

PATIENT
  Sex: Female

DRUGS (1)
  1. FORTEO [Suspect]
     Active Substance: TERIPARATIDE
     Indication: Product used for unknown indication
     Dosage: UNK UNK, UNKNOWN
     Route: 065

REACTIONS (7)
  - Eructation [Unknown]
  - Fatigue [Unknown]
  - Dyspnoea [Unknown]
  - Blood calcium increased [Unknown]
  - Nausea [Unknown]
  - Rash [Unknown]
  - Incorrect product administration duration [Unknown]
